FAERS Safety Report 18620453 (Version 1)
Quarter: 2020Q4

REPORT INFORMATION
  Report Type: Spontaneous
  Country: PT (occurrence: PT)
  Receive Date: 20201215
  Receipt Date: 20201215
  Transmission Date: 20210114
  Serious: Yes (Other)
  Sender: FDA-Public Use
  Company Number: PT-TAKEDA-2020TUS055858

PATIENT
  Age: 72 Year
  Sex: Male

DRUGS (1)
  1. HUMAN ALBUMIN [Suspect]
     Active Substance: ALBUMIN HUMAN
     Indication: PARACENTESIS
     Dosage: 40 GRAM FOR 10 MINUTES
     Route: 042
     Dates: start: 20201102, end: 20201102

REACTIONS (2)
  - Urticaria [Recovered/Resolved]
  - Pneumonia [Unknown]

NARRATIVE: CASE EVENT DATE: 20201102
